FAERS Safety Report 5263803-X (Version None)
Quarter: 2007Q1

REPORT INFORMATION
  Report Type: 
  Country: None (occurrence: None)
  Receive Date: 20061213
  Receipt Date: 20031001
  Transmission Date: 20070707
  Serious: Yes (Other)
  Sender: FDA-Public Use
  Company Number: 2003UW12632

PATIENT
  Sex: Male

DRUGS (2)
  1. IRESSA [Suspect]
     Indication: NON-SMALL CELL LUNG CANCER
     Dosage: 250 MG PO
     Route: 048
     Dates: start: 20030601, end: 20030101
  2. IRESSA [Suspect]
     Indication: NON-SMALL CELL LUNG CANCER
     Dosage: 250 MG PO
     Route: 048
     Dates: start: 20030101, end: 20030101

REACTIONS (4)
  - ARTHRALGIA [None]
  - FLUID OVERLOAD [None]
  - HICCUPS [None]
  - MUSCLE SPASMS [None]
